FAERS Safety Report 24808177 (Version 1)
Quarter: 2025Q1

REPORT INFORMATION
  Report Type: Report from Study
  Country: CA (occurrence: CA)
  Receive Date: 20250106
  Receipt Date: 20250106
  Transmission Date: 20250408
  Serious: Yes (Hospitalization, Other)
  Sender: CELLTRION
  Company Number: CA-CELLTRION INC.-2022CA022455

PATIENT

DRUGS (9)
  1. RITUXIMAB-ABBS [Suspect]
     Active Substance: RITUXIMAB-ABBS
     Indication: Vasculitis
     Route: 042
     Dates: start: 20230113
  2. RITUXIMAB-ABBS [Suspect]
     Active Substance: RITUXIMAB-ABBS
     Route: 042
     Dates: start: 202301
  3. RITUXIMAB-ABBS [Suspect]
     Active Substance: RITUXIMAB-ABBS
     Dosage: 500 MG IV JUN 2023 THAN EVERYMONTHS
     Route: 042
     Dates: start: 202306
  4. RITUXIMAB-ABBS [Suspect]
     Active Substance: RITUXIMAB-ABBS
     Route: 042
     Dates: start: 20230113
  5. RITUXIMAB-ABBS [Suspect]
     Active Substance: RITUXIMAB-ABBS
     Route: 042
     Dates: start: 20230113
  6. RITUXIMAB-ABBS [Suspect]
     Active Substance: RITUXIMAB-ABBS
     Route: 042
     Dates: start: 20230113
  7. ACETAMINOPHEN [Concomitant]
     Active Substance: ACETAMINOPHEN
     Indication: Premedication
     Route: 048
  8. BENADRYL [Concomitant]
     Active Substance: DIPHENHYDRAMINE HYDROCHLORIDE
     Indication: Premedication
     Route: 048
  9. SOLU-MEDROL [Concomitant]
     Active Substance: METHYLPREDNISOLONE SODIUM SUCCINATE
     Indication: Premedication
     Route: 042

REACTIONS (6)
  - Epilepsy [Unknown]
  - Tremor [Recovering/Resolving]
  - Memory impairment [Unknown]
  - Confusional state [Unknown]
  - Off label use [Unknown]
  - Off label use [Unknown]

NARRATIVE: CASE EVENT DATE: 20240831
